FAERS Safety Report 14122466 (Version 6)
Quarter: 2022Q3

REPORT INFORMATION
  Report Type: Report from Study
  Country: ES (occurrence: ES)
  Receive Date: 20171024
  Receipt Date: 20220726
  Transmission Date: 20221027
  Serious: Yes (Hospitalization)
  Sender: FDA-Public Use
  Company Number: ES-ABBVIE-17P-144-2136604-00

PATIENT
  Age: 47 Year
  Sex: Male

DRUGS (13)
  1. HUMIRA [Suspect]
     Active Substance: ADALIMUMAB
     Indication: Colitis ulcerative
     Route: 058
     Dates: start: 20090929, end: 20140905
  2. HUMIRA [Suspect]
     Active Substance: ADALIMUMAB
     Route: 058
     Dates: start: 20140925, end: 20170412
  3. AZATHIOPRINE [Suspect]
     Active Substance: AZATHIOPRINE
     Indication: Colitis ulcerative
     Route: 048
     Dates: start: 20070315, end: 20140922
  4. AZATHIOPRINE [Suspect]
     Active Substance: AZATHIOPRINE
     Route: 048
     Dates: start: 20140923, end: 20170412
  5. MESALAMINE [Concomitant]
     Active Substance: MESALAMINE
     Indication: Colitis ulcerative
     Dosage: AS REQUIRED
     Route: 054
     Dates: start: 20070720, end: 20171009
  6. MESALAMINE [Concomitant]
     Active Substance: MESALAMINE
     Dosage: AS REQUIRED
     Route: 048
     Dates: start: 20080107, end: 20171009
  7. DEFLAZACORT [Concomitant]
     Active Substance: DEFLAZACORT
     Indication: Colitis ulcerative
     Dosage: AS REQUIRED
     Route: 048
     Dates: start: 20070911, end: 20171009
  8. OMEPRAZOLE [Concomitant]
     Active Substance: OMEPRAZOLE
     Indication: Gastric disorder
     Route: 048
     Dates: start: 20110223, end: 20171009
  9. OMEPRAZOLE [Concomitant]
     Active Substance: OMEPRAZOLE
     Indication: Prophylaxis
  10. MASTICAL D [Concomitant]
     Indication: Osteoporosis
     Route: 048
     Dates: start: 20110223, end: 20171009
  11. HERBALS\PLANTAGO OVATA LEAF [Concomitant]
     Active Substance: HERBALS\PLANTAGO OVATA LEAF
     Indication: Constipation
     Dosage: AS REQUIRED
     Route: 048
     Dates: start: 20130104, end: 20171009
  12. PROLIA [Concomitant]
     Active Substance: DENOSUMAB
     Indication: Osteoporosis
     Route: 058
     Dates: start: 20141006, end: 20171009
  13. GOLIMUMAB [Concomitant]
     Active Substance: GOLIMUMAB
     Indication: Colitis ulcerative
     Route: 058
     Dates: start: 20170512

REACTIONS (1)
  - Enterovesical fistula [Recovered/Resolved]

NARRATIVE: CASE EVENT DATE: 20170918
